FAERS Safety Report 10279515 (Version 2)
Quarter: 2014Q3

REPORT INFORMATION
  Report Type: Spontaneous
  Country: IN (occurrence: IN)
  Receive Date: 20140707
  Receipt Date: 20140715
  Transmission Date: 20150326
  Serious: Yes (Hospitalization, Other)
  Sender: FDA-Public Use
  Company Number: IN-009507513-1407IND002141

PATIENT
  Age: 3 Day

DRUGS (1)
  1. LOSARTAN POTASSIUM. [Suspect]
     Active Substance: LOSARTAN POTASSIUM
     Route: 064

REACTIONS (3)
  - Oliguria [Recovering/Resolving]
  - Renal failure neonatal [Recovering/Resolving]
  - Foetal exposure during pregnancy [Unknown]
